FAERS Safety Report 6235741-7 (Version None)
Quarter: 2009Q2

REPORT INFORMATION
  Report Type: 
  Country: None (occurrence: None)
  Receive Date: 20090619
  Receipt Date: 20090605
  Transmission Date: 20091009
  Serious: Yes (Other)
  Sender: FDA-Public Use
  Company Number: TR-RANBAXY-2009RR-24570

PATIENT
  Age: 58 Year
  Sex: Female

DRUGS (2)
  1. CEFEPIME [Suspect]
     Indication: PYELONEPHRITIS
     Dosage: 4 G, UNK
  2. CLARITHROMYCIN [Suspect]
     Indication: PYELONEPHRITIS
     Dosage: 1 UNK, UNK

REACTIONS (1)
  - STATUS EPILEPTICUS [None]
